FAERS Safety Report 26167646 (Version 1)
Quarter: 2025Q4

REPORT INFORMATION
  Report Type: Spontaneous
  Country: US (occurrence: US)
  Receive Date: 20251217
  Receipt Date: 20251217
  Transmission Date: 20260118
  Serious: Yes (Hospitalization)
  Sender: PACIRA
  Company Number: US-ORG100016242-2025000383

PATIENT
  Age: 37 Year
  Sex: Male

DRUGS (2)
  1. EXPAREL [Suspect]
     Active Substance: BUPIVACAINE
     Indication: Surgery
     Dosage: NOT PROVIDED
     Route: 050
     Dates: start: 20250916, end: 20250916
  2. UNSPECIFIED INGREDIENT [Concomitant]
     Active Substance: UNSPECIFIED INGREDIENT
     Indication: Product used for unknown indication
     Dosage: 20MG OF BUPIVACAINE OR 0.2MG ROPIVACAINE NOT CONFIRMED WHICH
     Route: 065
     Dates: start: 20250917, end: 20250917

REACTIONS (4)
  - Pain [Unknown]
  - Pyrexia [Unknown]
  - Chills [Unknown]
  - Inappropriate schedule of product administration [Unknown]
